FAERS Safety Report 6785107-6 (Version None)
Quarter: 2010Q2

REPORT INFORMATION
  Report Type: 
  Country: None (occurrence: None)
  Receive Date: 20100618
  Receipt Date: 20100609
  Transmission Date: 20101027
  Serious: Yes (Other)
  Sender: FDA-Public Use
  Company Number: 2010EU002435

PATIENT
  Age: 87 Year
  Sex: Male

DRUGS (1)
  1. PROTOPIC [Suspect]

REACTIONS (1)
  - LUNG DISORDER [None]
